FAERS Safety Report 11909546 (Version 1)
Quarter: 2016Q1

REPORT INFORMATION
  Report Type: Spontaneous
  Country: US (occurrence: US)
  Receive Date: 20160112
  Receipt Date: 20160112
  Transmission Date: 20160526
  Serious: Yes (Other)
  Sender: FDA-Public Use
  Company Number: US-ROCHE-1692832

PATIENT
  Sex: Male

DRUGS (1)
  1. NUTROPIN [Suspect]
     Active Substance: SOMATROPIN
     Indication: GROWTH RETARDATION
     Route: 065
     Dates: start: 201305

REACTIONS (4)
  - Vitiligo [Unknown]
  - Precocious puberty [Not Recovered/Not Resolved]
  - Protein urine present [Unknown]
  - Glomerulonephritis membranoproliferative [Recovering/Resolving]

NARRATIVE: CASE EVENT DATE: 201407
